FAERS Safety Report 17630470 (Version 1)
Quarter: 2020Q2

REPORT INFORMATION
  Report Type: Spontaneous
  Country: CA (occurrence: CA)
  Receive Date: 20200404
  Receipt Date: 20200404
  Transmission Date: 20200713
  Serious: Yes (Disabling)
  Sender: FDA-Public Use
  Company Number: None

PATIENT
  Age: 28 Year
  Sex: Female
  Weight: 56.25 kg

DRUGS (3)
  1. NALTREXONE [Concomitant]
     Active Substance: NALTREXONE
  2. PROBIOTICS [Concomitant]
     Active Substance: PROBIOTICS NOS
  3. EMGALITY [Suspect]
     Active Substance: GALCANEZUMAB-GNLM
     Indication: MIGRAINE
     Dosage: ?          QUANTITY:2 INJECTION(S);OTHER FREQUENCY:ONCE A MONTH;?
     Route: 058
     Dates: start: 20200315

REACTIONS (8)
  - Chest pain [None]
  - Flushing [None]
  - Musculoskeletal chest pain [None]
  - Feeling cold [None]
  - Chest discomfort [None]
  - Dysphonia [None]
  - Productive cough [None]
  - Pruritus [None]

NARRATIVE: CASE EVENT DATE: 20200317
